FAERS Safety Report 9306817 (Version 1)
Quarter: 2013Q1

REPORT INFORMATION
  Report Type: Spontaneous
  Country: DE (occurrence: None)
  Receive Date: 20130312
  Receipt Date: 20130312
  Transmission Date: 20140127
  Serious: No
  Sender: FDA-Public Use
  Company Number: SYM-2013-00963

PATIENT
  Age: 27 Year
  Sex: Female

DRUGS (1)
  1. ELONTRIL [Suspect]
     Indication: PRODUCT USED FOR UNKNOWN INDICATION
     Route: 048

REACTIONS (6)
  - Urticaria [None]
  - Anaphylactic shock [None]
  - Muscle spasms [None]
  - Pain [None]
  - Diarrhoea [None]
  - Fluid retention [None]
